FAERS Safety Report 11537516 (Version 1)
Quarter: 2015Q3

REPORT INFORMATION
  Report Type: Other
  Country: US (occurrence: US)
  Receive Date: 20150922
  Receipt Date: 20150922
  Transmission Date: 20151125
  Serious: Yes (Death, Other)
  Sender: FDA-Public Use
  Company Number: US-SHIRE-US201511883

PATIENT
  Age: 34 Year
  Sex: Male

DRUGS (1)
  1. ELAPRASE [Suspect]
     Active Substance: IDURSULFASE
     Indication: MUCOPOLYSACCHARIDOSIS II
     Dosage: 72 MG(12 VIALS), 1X/WEEK
     Route: 041
     Dates: start: 20060908, end: 20150810

REACTIONS (1)
  - Death [Fatal]

NARRATIVE: CASE EVENT DATE: 20150810
